FAERS Safety Report 9736038 (Version 1)
Quarter: 2013Q4

REPORT INFORMATION
  Report Type: Spontaneous
  Country: US (occurrence: None)
  Receive Date: 20131205
  Receipt Date: 20131205
  Transmission Date: 20140711
  Serious: No
  Sender: FDA-Public Use
  Company Number: None

PATIENT
  Age: 69 Year
  Sex: Female
  Weight: 68 kg

DRUGS (2)
  1. CARBOPLATIN [Suspect]
     Dates: start: 20130812
  2. PACLITAXEL (TAXOL) [Suspect]

REACTIONS (2)
  - Body temperature increased [None]
  - Klebsiella bacteraemia [None]
